FAERS Safety Report 25804396 (Version 4)
Quarter: 2025Q4

REPORT INFORMATION
  Report Type: Spontaneous
  Country: CA (occurrence: CA)
  Receive Date: 20250915
  Receipt Date: 20251023
  Transmission Date: 20260118
  Serious: Yes (Life-Threatening, Hospitalization, Other)
  Sender: PFIZER
  Company Number: CA-PFIZER INC-202500180733

PATIENT
  Age: 53 Year
  Sex: Male
  Weight: 104 kg

DRUGS (2)
  1. IXIFI [Suspect]
     Active Substance: INFLIXIMAB-QBTX
     Indication: Colitis ulcerative
     Dosage: 600 MG, WEEK 0, 2 AND 6, THEN EVERY 8 WEEKS (HOSPITAL START)
     Route: 042
     Dates: start: 2025
  2. IXIFI [Suspect]
     Active Substance: INFLIXIMAB-QBTX
     Dosage: 600 MG, AT WEEK 2, 6 AND THEN EVERY 8 WEEKS
     Dates: start: 20250910

REACTIONS (12)
  - Throat tightness [Unknown]
  - Hyperhidrosis [Recovering/Resolving]
  - Tachypnoea [Unknown]
  - Feeling cold [Unknown]
  - Pallor [Unknown]
  - Chills [Unknown]
  - Flushing [Unknown]
  - Hypotension [Unknown]
  - Dyspnoea [Not Recovered/Not Resolved]
  - Nausea [Recovering/Resolving]
  - Chest pain [Unknown]
  - Anaphylactic reaction [Unknown]

NARRATIVE: CASE EVENT DATE: 20250101
